FAERS Safety Report 8974877 (Version 2)
Quarter: 2013Q1

REPORT INFORMATION
  Report Type: Spontaneous
  Country: US (occurrence: US)
  Receive Date: 20121219
  Receipt Date: 20130114
  Transmission Date: 20140127
  Serious: Yes (Hospitalization, Other)
  Sender: FDA-Public Use
  Company Number: US-BAXTER-2012BAX027135

PATIENT
  Age: 88 None
  Sex: Female

DRUGS (2)
  1. DIANEAL LOW CALCIUM [Suspect]
     Indication: PERITONEAL DIALYSIS
     Route: 033
  2. INSULIN [Concomitant]
     Indication: DIABETES MELLITUS
     Route: 065

REACTIONS (11)
  - Cardiac failure congestive [Unknown]
  - Peritoneal dialysis complication [Recovering/Resolving]
  - Chest pain [Recovering/Resolving]
  - Myocardial infarction [Recovering/Resolving]
  - Clostridium difficile infection [Recovering/Resolving]
  - Dehydration [Not Recovered/Not Resolved]
  - Hypotension [Not Recovered/Not Resolved]
  - Gastric disorder [Recovering/Resolving]
  - Eructation [Recovering/Resolving]
  - Flatulence [Recovering/Resolving]
  - Abdominal distension [Recovering/Resolving]
